FAERS Safety Report 10479590 (Version 1)
Quarter: 2014Q3

REPORT INFORMATION
  Report Type: Spontaneous
  Country: IE (occurrence: IE)
  Receive Date: 20140927
  Receipt Date: 20140927
  Transmission Date: 20150326
  Serious: Yes (Death, Hospitalization)
  Sender: FDA-Public Use
  Company Number: IE-PERRIGO-14IE009230

PATIENT
  Age: 54 Year
  Sex: Female

DRUGS (2)
  1. ACETAMINOPHEN 650MG ER 544 [Suspect]
     Active Substance: ACETAMINOPHEN
     Indication: INTENTIONAL OVERDOSE
     Dosage: UNK, UNK
     Route: 048
  2. VALPROATE SODIUM. [Concomitant]
     Active Substance: VALPROATE SODIUM
     Indication: BIPOLAR DISORDER
     Dosage: UNK
     Route: 048

REACTIONS (11)
  - Circulatory collapse [Fatal]
  - Acute hepatic failure [Unknown]
  - Hepatic necrosis [Unknown]
  - Encephalopathy [Unknown]
  - Coagulopathy [Unknown]
  - Overdose [Unknown]
  - Upper gastrointestinal haemorrhage [Unknown]
  - Abdominal discomfort [Unknown]
  - Toxicity to various agents [Unknown]
  - Jaundice [Unknown]
  - Nausea [Unknown]
